FAERS Safety Report 7946503-4 (Version None)
Quarter: 2011Q4

REPORT INFORMATION
  Report Type: 
  Country: None (occurrence: None)
  Receive Date: 20111129
  Receipt Date: 20111117
  Transmission Date: 20120403
  Serious: Yes (Hospitalization, Other)
  Sender: FDA-Public Use
  Company Number: US-ELI_LILLY_AND_COMPANY-US201106006456

PATIENT
  Sex: Female
  Weight: 70.794 kg

DRUGS (21)
  1. MYCOPHENOLATE MOFETIL (CELLCEPT) [Concomitant]
  2. FORTEO [Suspect]
     Dosage: 20 UG, QD
     Route: 058
  3. LIDOCAINE [Concomitant]
  4. METHOTREXATE [Concomitant]
  5. CALCIUM +VIT D [Concomitant]
  6. METOPROLOL TARTRATE [Concomitant]
  7. INSULIN [Concomitant]
  8. NAPROXEN [Concomitant]
  9. PREDNISONE TAB [Concomitant]
  10. PLAQUENIL [Concomitant]
  11. FORTEO [Suspect]
     Indication: OSTEOPOROSIS
     Dosage: 20 UG, QD
     Route: 058
     Dates: start: 20110213
  12. FORTEO [Suspect]
     Dosage: 20 UG, QD
     Route: 058
  13. OMEPRAZOLE [Concomitant]
  14. LEVETIRACETAM [Concomitant]
  15. HYDROCODONE BITARTRATE AND ACETAMINOPHEN [Concomitant]
  16. TRAMADOL HCL [Concomitant]
  17. GABAPENTIN [Concomitant]
  18. KLOR-CON [Concomitant]
  19. METOCLOPRAMIDE [Concomitant]
  20. METFORMIN HCL [Concomitant]
  21. ONDANSETRON [Concomitant]

REACTIONS (15)
  - ADVERSE REACTION [None]
  - PAIN [None]
  - PAIN IN EXTREMITY [None]
  - LOSS OF CONSCIOUSNESS [None]
  - AMNESIA [None]
  - URINARY TRACT INFECTION [None]
  - MALAISE [None]
  - DIZZINESS [None]
  - SALIVARY HYPERSECRETION [None]
  - MYOSITIS [None]
  - SCREAMING [None]
  - PNEUMONIA [None]
  - SPINAL COLUMN STENOSIS [None]
  - HOSPITALISATION [None]
  - VOMITING [None]
